FAERS Safety Report 9897471 (Version 4)
Quarter: 2014Q4

REPORT INFORMATION
  Report Type: Spontaneous
  Country: US (occurrence: US)
  Receive Date: 20140214
  Receipt Date: 20141119
  Transmission Date: 20150529
  Serious: Yes (Hospitalization, Other)
  Sender: FDA-Public Use
  Company Number: US-BAYER-2014-023471

PATIENT
  Age: 18 Year
  Sex: Female
  Weight: 70.3 kg

DRUGS (1)
  1. MIRENA [Suspect]
     Active Substance: LEVONORGESTREL
     Indication: CONTRACEPTION
     Dosage: 20 MCG/24HR, CONT
     Route: 015
     Dates: start: 20070410, end: 20071016

REACTIONS (8)
  - Medical device discomfort [None]
  - Uterine perforation [None]
  - Device failure [None]
  - Injury [None]
  - Procedural pain [None]
  - Device issue [None]
  - Scar [None]
  - Pain [None]

NARRATIVE: CASE EVENT DATE: 20071016
